FAERS Safety Report 4382831-X (Version None)
Quarter: 2004Q2

REPORT INFORMATION
  Report Type: 
  Country: None (occurrence: None)
  Receive Date: 20040617
  Receipt Date: 20040607
  Transmission Date: 20050107
  Serious: Yes (Other)
  Sender: FDA-Public Use
  Company Number: US-JNJFOC-20040303714

PATIENT
  Age: 16 Year
  Sex: Female
  Weight: 58.9676 kg

DRUGS (1)
  1. ORTHO EVRA [Suspect]
     Indication: CONTRACEPTION
     Dosage: 1 DOSE (S), 3 IN 4 WEEK
     Dates: start: 20040218, end: 20040308

REACTIONS (5)
  - CARDIAC VALVE REPLACEMENT COMPLICATION [None]
  - PERICARDIAL EFFUSION [None]
  - RESPIRATORY TRACT CONGESTION [None]
  - SURGICAL PROCEDURE REPEATED [None]
  - THROMBOSIS [None]
